FAERS Safety Report 14249236 (Version 4)
Quarter: 2018Q3

REPORT INFORMATION
  Report Type: Report from Study
  Country: DE (occurrence: DE)
  Receive Date: 20171204
  Receipt Date: 20180924
  Transmission Date: 20181010
  Serious: Yes (Hospitalization)
  Sender: FDA-Public Use
  Company Number: DE-PFIZER INC-2017517235

PATIENT
  Age: 77 Year
  Sex: Male

DRUGS (11)
  1. CALCILAC [CALCIUM CARBONATE;COLECALCIFEROL] [Concomitant]
  2. ALDACTONE [Concomitant]
     Active Substance: SPIRONOLACTONE
     Dosage: 50 MG, UNK
     Route: 065
  3. SIMVAHEXAL [Concomitant]
     Active Substance: SIMVASTATIN
     Dosage: 20 MG, UNK
     Route: 065
  4. METHOTREXATE SODIUM. [Suspect]
     Active Substance: METHOTREXATE SODIUM
     Indication: RHEUMATOID ARTHRITIS
     Dosage: 15 MG, WEEKLY
     Route: 065
  5. MABTHERA [Suspect]
     Active Substance: RITUXIMAB
     Indication: RHEUMATOID ARTHRITIS
     Dosage: 1000 MG, UNK
     Route: 042
     Dates: end: 20170221
  6. NO SUBJECT DRUG [Suspect]
     Active Substance: UNSPECIFIED INGREDIENT
     Dosage: NO DOSE GIVEN
  7. PANTOZOL [Concomitant]
     Active Substance: PANTOPRAZOLE SODIUM
     Dosage: 40 MG, UNK
     Route: 065
  8. PREDNISOLONE. [Concomitant]
     Active Substance: PREDNISOLONE
     Dosage: 5 MG, UNK
     Route: 065
  9. FOLSAN [Concomitant]
     Active Substance: FOLIC ACID
     Dosage: 5 MG, UNK
  10. CLEXANE [Concomitant]
     Active Substance: ENOXAPARIN SODIUM
     Dosage: 100 MG, UNK
     Route: 065
  11. FALITHROM [Concomitant]
     Active Substance: PHENPROCOUMON
     Dosage: 3 MG, UNK
     Route: 065

REACTIONS (4)
  - Cardiac failure congestive [Recovered/Resolved]
  - Congestive cardiomyopathy [Recovered/Resolved]
  - Left ventricular dysfunction [Recovered/Resolved]
  - Cardiac failure [Recovered/Resolved]

NARRATIVE: CASE EVENT DATE: 20170921
